FAERS Safety Report 24591216 (Version 1)
Quarter: 2024Q4

REPORT INFORMATION
  Report Type: Report from Study
  Country: US (occurrence: US)
  Receive Date: 20241108
  Receipt Date: 20241108
  Transmission Date: 20250115
  Serious: No
  Sender: ACADIA PHARMACEUTICALS
  Company Number: US-ACADIA PHARMACEUTICALS INC.-ACA-2024-PIM-006957

PATIENT
  Age: 74 Year
  Sex: Male

DRUGS (22)
  1. NUPLAZID [Suspect]
     Active Substance: PIMAVANSERIN TARTRATE
     Indication: Parkinson^s disease
     Dosage: 34 MILLIGRAM, QD
     Route: 048
     Dates: start: 20230310
  2. ATORVASTATIN [Concomitant]
     Active Substance: ATORVASTATIN
  3. LISINOPRIL [Concomitant]
     Active Substance: LISINOPRIL
  4. METFORMIN [Concomitant]
     Active Substance: METFORMIN HYDROCHLORIDE
  5. PANTOPRAZOLE [Concomitant]
     Active Substance: PANTOPRAZOLE
  6. TAMSULOSIN [Concomitant]
     Active Substance: TAMSULOSIN
  7. ROPINIROLE [Concomitant]
     Active Substance: ROPINIROLE
  8. SERTRALINE [Concomitant]
     Active Substance: SERTRALINE HYDROCHLORIDE
  9. RANOLAZINE [Concomitant]
     Active Substance: RANOLAZINE
  10. ASPIRIN [Concomitant]
     Active Substance: ASPIRIN
  11. FLUTICASONE [Concomitant]
     Active Substance: FLUTICASONE
  12. BREZTRI [Concomitant]
     Active Substance: BUDESONIDE\FORMOTEROL\GLYCOPYRROLATE
  13. PROAIR HFA [Concomitant]
     Active Substance: ALBUTEROL SULFATE
  14. NITROGLYCERIN [Concomitant]
     Active Substance: NITROGLYCERIN
  15. VITAMIN D3 [Concomitant]
     Active Substance: CHOLECALCIFEROL
  16. VITAMIN E [Concomitant]
     Active Substance: .ALPHA.-TOCOPHEROL
  17. IRON [Concomitant]
     Active Substance: IRON
  18. OMEGA [DOCOSAHEXAENOIC ACID] [Concomitant]
     Dosage: 1000 MILLIGRAM
  19. STOOL SOFTENER (DOCUSATE) [Concomitant]
     Active Substance: DOCUSATE
     Dosage: 250 MILLIGRAM
  20. NORTHERA [Concomitant]
     Active Substance: DROXIDOPA
     Dosage: 100 MILLIGRAM
  21. MEMANTINE [Concomitant]
     Active Substance: MEMANTINE
     Dosage: 28 MILLIGRAM
  22. RYTARY [Concomitant]
     Active Substance: CARBIDOPA\LEVODOPA

REACTIONS (3)
  - Dizziness [Not Recovered/Not Resolved]
  - Balance disorder [Unknown]
  - Fall [Unknown]

NARRATIVE: CASE EVENT DATE: 20241027
